FAERS Safety Report 6012679-1 (Version None)
Quarter: 2008Q4

REPORT INFORMATION
  Report Type: 
  Country: None (occurrence: None)
  Receive Date: 20081218
  Receipt Date: 20081211
  Transmission Date: 20090506
  Serious: No
  Sender: FDA-Public Use
  Company Number: DK-AMGEN-UK321538

PATIENT
  Sex: Female
  Weight: 72 kg

DRUGS (1)
  1. ARANESP [Suspect]
     Indication: ANAEMIA
     Route: 058
     Dates: start: 20080525, end: 20081126

REACTIONS (1)
  - HYPOAESTHESIA [None]
